FAERS Safety Report 13861946 (Version 1)
Quarter: 2017Q3

REPORT INFORMATION
  Report Type: Spontaneous
  Country: US (occurrence: US)
  Receive Date: 20170811
  Receipt Date: 20170811
  Transmission Date: 20171127
  Serious: No
  Sender: FDA-Public Use
  Company Number: US-ACTELION-A-US2017-157930

PATIENT
  Age: 72 Year
  Sex: Male

DRUGS (3)
  1. VALCHLOR [Suspect]
     Active Substance: MECHLORETHAMINE
     Indication: MYCOSIS FUNGOIDES
     Dosage: THIN FILM TO AFFECTED SKIN DAILY
     Route: 061
     Dates: start: 20170719
  2. CLOBETASOL [Concomitant]
     Active Substance: CLOBETASOL
     Route: 061
  3. TARGRETIN [Concomitant]
     Active Substance: BEXAROTENE
     Dosage: 1 %, UNK

REACTIONS (1)
  - Therapy non-responder [Unknown]
